FAERS Safety Report 10881667 (Version 3)
Quarter: 2015Q1

REPORT INFORMATION
  Report Type: Spontaneous
  Country: FI (occurrence: None)
  Receive Date: 20150226
  Receipt Date: 20150325
  Transmission Date: 20150721
  Serious: Yes (Hospitalization, Other)
  Sender: FDA-Public Use
  Company Number: 2756634

PATIENT
  Age: 57 Year
  Sex: Female

DRUGS (6)
  1. DABIGATRAN [Concomitant]
     Active Substance: DABIGATRAN
  2. DEXMEDETOMIDINE HYDROCHLORIDE. [Suspect]
     Active Substance: DEXMEDETOMIDINE HYDROCHLORIDE
     Indication: SEDATION
     Dosage: 1 UG/KG MICROGRAM(S)/KILOGRM (1 HOUR), INTRAVENOUS (NOT OTHERWISE SPECIFIED)?
     Route: 042
  3. OXYCODONE [Concomitant]
     Active Substance: OXYCODONE
  4. ALFENTANIL [Concomitant]
     Active Substance: ALFENTANIL
  5. TINZAPARIN [Concomitant]
     Active Substance: TINZAPARIN
  6. THYROID HORMONES [Concomitant]
     Active Substance: UNSPECIFIED INGREDIENT

REACTIONS (4)
  - Off label use [None]
  - Cerebral infarction [None]
  - Thrombosis [None]
  - Sedation [None]
